FAERS Safety Report 19888255 (Version 1)
Quarter: 2021Q3

REPORT INFORMATION
  Report Type: Spontaneous
  Country: AU (occurrence: AU)
  Receive Date: 20210928
  Receipt Date: 20210928
  Transmission Date: 20211014
  Serious: Yes (Other)
  Sender: FDA-Public Use
  Company Number: AU-AMGEN-AUSSP2021146679

PATIENT
  Age: 38 Year
  Sex: Female

DRUGS (10)
  1. MYCOPHENOLATE MOFETIL. [Suspect]
     Active Substance: MYCOPHENOLATE MOFETIL
     Indication: COGAN^S SYNDROME
     Route: 065
  2. CERTOLIZUMAB PEGOL [Suspect]
     Active Substance: CERTOLIZUMAB PEGOL
     Indication: COGAN^S SYNDROME
     Route: 065
  3. CYCLOPHOSPHAMIDE. [Suspect]
     Active Substance: CYCLOPHOSPHAMIDE
     Indication: COGAN^S SYNDROME
     Route: 065
  4. AMGEVITA [Suspect]
     Active Substance: ADALIMUMAB
     Indication: OFF LABEL USE
  5. PREDNISOLONE. [Concomitant]
     Active Substance: PREDNISOLONE
     Indication: PROPHYLAXIS
  6. METHOTREXATE. [Suspect]
     Active Substance: METHOTREXATE
     Indication: COGAN^S SYNDROME
     Route: 065
  7. TOCILIZUMAB. [Suspect]
     Active Substance: TOCILIZUMAB
     Indication: COGAN^S SYNDROME
     Route: 065
  8. AMGEVITA [Suspect]
     Active Substance: ADALIMUMAB
     Indication: COGAN^S SYNDROME
     Dosage: UNK
     Route: 065
  9. INFLIXIMAB [Suspect]
     Active Substance: INFLIXIMAB
     Indication: COGAN^S SYNDROME
     Route: 065
  10. RITUXIMAB. [Suspect]
     Active Substance: RITUXIMAB
     Indication: COGAN^S SYNDROME
     Route: 065

REACTIONS (4)
  - Hepatotoxicity [Unknown]
  - Off label use [Unknown]
  - Drug ineffective for unapproved indication [Unknown]
  - Drug intolerance [Unknown]
